FAERS Safety Report 8820607 (Version 2)
Quarter: 2012Q4

REPORT INFORMATION
  Report Type: 
  Country: JP (occurrence: JP)
  Receive Date: 20121002
  Receipt Date: 20121112
  Transmission Date: 20130627
  Serious: Yes (Death, Other)
  Sender: FDA-Public Use
  Company Number: JP-JNJFOC-20120913416

PATIENT
  Age: 84 Year
  Sex: Female

DRUGS (6)
  1. REMINYL [Suspect]
     Indication: DEMENTIA ALZHEIMER^S TYPE
     Route: 048
     Dates: start: 20120204, end: 20120410
  2. REMINYL [Suspect]
     Indication: DEMENTIA ALZHEIMER^S TYPE
     Route: 048
     Dates: start: 20111209, end: 20120106
  3. REMINYL [Suspect]
     Indication: DEMENTIA ALZHEIMER^S TYPE
     Route: 048
     Dates: start: 20120107, end: 20120203
  4. SYMMETREL [Concomitant]
     Indication: DEMENTIA ALZHEIMER^S TYPE
     Route: 048
     Dates: start: 20111209, end: 20120501
  5. UNKNOWN MEDICATION [Concomitant]
     Route: 048
     Dates: start: 20120303, end: 20120410
  6. UNKNOWN MEDICATION [Concomitant]
     Route: 048
     Dates: start: 20120107, end: 20120302

REACTIONS (2)
  - Gastric ulcer haemorrhage [Fatal]
  - Dementia [Unknown]
